FAERS Safety Report 5402866-5 (Version None)
Quarter: 2007Q3

REPORT INFORMATION
  Report Type: 
  Country: None (occurrence: None)
  Receive Date: 20070718
  Receipt Date: 20061103
  Transmission Date: 20080115
  Serious: Yes (Life-Threatening, Hospitalization)
  Sender: FDA-Public Use
  Company Number: 2006114871

PATIENT
  Age: 52 Year
  Sex: Male
  Weight: 87.9978 kg

DRUGS (5)
  1. CELEBREX [Suspect]
     Indication: ACCIDENT
     Dosage: 200 MG (200 MG,1 IN 1 D),ORAL
     Route: 048
     Dates: start: 20060515
  2. CELEBREX [Suspect]
     Indication: INJURY
     Dosage: 200 MG (200 MG,1 IN 1 D),ORAL
     Route: 048
     Dates: start: 20060515
  3. GLUCOVANCE [Concomitant]
  4. LISINOPRIL [Concomitant]
  5. VYTORIN [Concomitant]

REACTIONS (1)
  - STEVENS-JOHNSON SYNDROME [None]
